FAERS Safety Report 7033337-0 (Version None)
Quarter: 2010Q4

REPORT INFORMATION
  Report Type: 
  Country: None (occurrence: None)
  Receive Date: 20101007
  Receipt Date: 20101001
  Transmission Date: 20110411
  Serious: Yes (Other)
  Sender: FDA-Public Use
  Company Number: ES-BRISTOL-MYERS SQUIBB COMPANY-15318728

PATIENT

DRUGS (4)
  1. APROVEL [Suspect]
     Route: 065
  2. DOXAZOSIN MESYLATE [Suspect]
     Route: 065
  3. SIMVASTATIN [Suspect]
     Route: 065
  4. TRANGOREX [Suspect]
     Route: 065

REACTIONS (1)
  - CARDIOVASCULAR DISORDER [None]
